FAERS Safety Report 4988097-1 (Version None)
Quarter: 2006Q2

REPORT INFORMATION
  Report Type: 
  Country: None (occurrence: None)
  Receive Date: 20060501
  Receipt Date: 20050901
  Transmission Date: 20061013
  Serious: Yes (Hospitalization)
  Sender: FDA-Public Use
  Company Number: US-MERCK-0509USA00430

PATIENT
  Age: 80 Year
  Sex: Male

DRUGS (2)
  1. VIOXX [Suspect]
     Indication: ARTHRITIS
     Route: 048
     Dates: start: 20010124, end: 20040701
  2. VERAPAMIL [Concomitant]
     Route: 065

REACTIONS (14)
  - ATRIOVENTRICULAR BLOCK COMPLETE [None]
  - BRADYCARDIA [None]
  - BUNDLE BRANCH BLOCK RIGHT [None]
  - CARDIAC DISORDER [None]
  - CARDIAC FAILURE CONGESTIVE [None]
  - CARDIOMEGALY [None]
  - CHRONIC OBSTRUCTIVE PULMONARY DISEASE [None]
  - DIZZINESS [None]
  - INGROWING NAIL [None]
  - INJURY [None]
  - LOSS OF CONSCIOUSNESS [None]
  - RENAL DISORDER [None]
  - SLEEP APNOEA SYNDROME [None]
  - SYNCOPE [None]
